FAERS Safety Report 12368216 (Version 1)
Quarter: 2016Q2

REPORT INFORMATION
  Report Type: Spontaneous
  Country: US (occurrence: US)
  Receive Date: 20160513
  Receipt Date: 20160513
  Transmission Date: 20160815
  Serious: No
  Sender: FDA-Public Use
  Company Number: US-JNJFOC-20160329531

PATIENT
  Age: 72 Year
  Sex: Female
  Weight: 67.13 kg

DRUGS (6)
  1. WOMENS ROGAINE [Suspect]
     Active Substance: MINOXIDIL
     Indication: ALOPECIA
     Route: 061
  2. WOMENS ROGAINE [Suspect]
     Active Substance: MINOXIDIL
     Route: 061
  3. GLUCOMINE [Concomitant]
     Indication: ARTHROPATHY
     Dosage: 1 PILL
     Route: 065
  4. CENTRUM SILVER [Concomitant]
     Active Substance: MINERALS\VITAMINS
     Indication: ROUTINE HEALTH MAINTENANCE
     Dosage: 1 PILL
     Route: 065
  5. TURMERIC [Concomitant]
     Active Substance: TURMERIC
     Indication: ANTIOXIDANT THERAPY
     Dosage: 1 PILL
     Route: 065
  6. VITAMIN D3 [Concomitant]
     Active Substance: CHOLECALCIFEROL
     Indication: INFECTION PROPHYLAXIS
     Dosage: 1 PILL
     Route: 065

REACTIONS (2)
  - Drug administered at inappropriate site [Unknown]
  - Therapeutic response decreased [Unknown]
